FAERS Safety Report 18196610 (Version 2)
Quarter: 2020Q4

REPORT INFORMATION
  Report Type: Spontaneous
  Country: US (occurrence: US)
  Receive Date: 20200825
  Receipt Date: 20201015
  Transmission Date: 20210113
  Serious: No
  Sender: FDA-Public Use
  Company Number: US-ASTRAZENECA-2020SF01390

PATIENT
  Sex: Female
  Weight: 83.9 kg

DRUGS (4)
  1. PREDNISONE. [Concomitant]
     Active Substance: PREDNISONE
     Dosage: AS REQUIRED
  2. SYMBICORT [Suspect]
     Active Substance: BUDESONIDE\FORMOTEROL FUMARATE DIHYDRATE
     Indication: ASTHMA
     Dosage: 80/4.5 MCG 2 PUFFS TWO TIMES A DAY
     Route: 055
     Dates: start: 2018
  3. PROAIR HFA [Concomitant]
     Active Substance: ALBUTEROL SULFATE
  4. IPRA [Concomitant]

REACTIONS (5)
  - Drug dose omission by device [Unknown]
  - Device issue [Unknown]
  - Middle insomnia [Not Recovered/Not Resolved]
  - Dyspnoea [Unknown]
  - Choking sensation [Unknown]
